FAERS Safety Report 25585542 (Version 1)
Quarter: 2025Q3

REPORT INFORMATION
  Report Type: Spontaneous
  Country: US (occurrence: None)
  Receive Date: 20250718
  Receipt Date: 20250718
  Transmission Date: 20251021
  Serious: Yes (Hospitalization)
  Sender: FDA-CTU
  Company Number: None

PATIENT
  Age: 76 Year
  Sex: Female

DRUGS (9)
  1. FARXIGA [Suspect]
     Active Substance: DAPAGLIFLOZIN PROPANEDIOL
     Indication: Hypertensive heart disease
     Dosage: FREQUENCY : DAILY;?
     Route: 048
     Dates: start: 20250714, end: 20250714
  2. FARXIGA [Suspect]
     Active Substance: DAPAGLIFLOZIN PROPANEDIOL
     Indication: Chronic kidney disease
  3. MELOXICAM [Concomitant]
     Active Substance: MELOXICAM
  4. REPATHA [Concomitant]
     Active Substance: EVOLOCUMAB
  5. MONTELUKAST [Concomitant]
     Active Substance: MONTELUKAST
  6. NITROGLYCERIN [Concomitant]
     Active Substance: NITROGLYCERIN
  7. PANTOPRAZOLE [Concomitant]
     Active Substance: PANTOPRAZOLE
  8. LEVOTHYROXINE [Concomitant]
     Active Substance: LEVOTHYROXINE
  9. ELIQUIS [Concomitant]
     Active Substance: APIXABAN

REACTIONS (6)
  - Discoloured vomit [None]
  - Headache [None]
  - Dysuria [None]
  - Dehydration [None]
  - Diarrhoea [None]
  - Malaise [None]

NARRATIVE: CASE EVENT DATE: 20250714
